FAERS Safety Report 24062577 (Version 2)
Quarter: 2024Q3

REPORT INFORMATION
  Report Type: Spontaneous
  Country: CA (occurrence: CA)
  Receive Date: 20240708
  Receipt Date: 20240904
  Transmission Date: 20241017
  Serious: Yes (Other)
  Sender: ANI
  Company Number: CA-ANIPHARMA-2024-CA-003141

PATIENT
  Age: 59 Year
  Sex: Female

DRUGS (2)
  1. CANDESARTAN CILEXETIL [Suspect]
     Active Substance: CANDESARTAN CILEXETIL
     Indication: Blood pressure abnormal
     Dosage: 1 MG QD
     Route: 048
  2. SIMPONI [Suspect]
     Active Substance: GOLIMUMAB
     Dosage: 50 MG Q3WK / 50 MG MONTH
     Route: 058

REACTIONS (16)
  - Blood cholesterol increased [Unknown]
  - Blood pressure fluctuation [Unknown]
  - Decreased appetite [Unknown]
  - Diarrhoea [Unknown]
  - Dizziness [Unknown]
  - Nausea [Unknown]
  - Palpitations [Unknown]
  - Vomiting [Unknown]
  - Blood pressure decreased [Unknown]
  - Chills [Unknown]
  - Hypertension [Unknown]
  - Lymphocyte count increased [Unknown]
  - Nasopharyngitis [Unknown]
  - Renal impairment [Unknown]
  - Serum ferritin increased [Unknown]
  - Weight decreased [Unknown]
